FAERS Safety Report 9783549 (Version 1)
Quarter: 2013Q4

REPORT INFORMATION
  Report Type: Spontaneous
  Country: GB (occurrence: GB)
  Receive Date: 20131226
  Receipt Date: 20131226
  Transmission Date: 20140711
  Serious: Yes (Disabling)
  Sender: FDA-Public Use
  Company Number: GB-TEVA-451454ISR

PATIENT
  Age: 61 Year
  Sex: Male
  Weight: 132.5 kg

DRUGS (15)
  1. PRAVASTATIN [Suspect]
     Dates: start: 20130823
  2. STATINS [Suspect]
     Dates: start: 20131202
  3. ALFACALCIDOL [Concomitant]
     Dates: start: 20130729
  4. BISOPROLOL [Concomitant]
     Dates: start: 20130823, end: 20131008
  5. BISOPROLOL [Concomitant]
     Dates: start: 20131018
  6. FELODIPINE [Concomitant]
     Dates: start: 20130823, end: 20131008
  7. FELODIPINE [Concomitant]
     Dates: start: 20131018
  8. FUROSEMIDE [Concomitant]
     Dates: start: 20130823, end: 20131008
  9. FUROSEMIDE [Concomitant]
     Dates: start: 20131018
  10. MOXONIDINE [Concomitant]
     Dates: start: 20130823, end: 20131008
  11. MOXONIDINE [Concomitant]
     Dates: start: 20131018
  12. RAMIPRIL [Concomitant]
     Dates: start: 20130823, end: 20131008
  13. RAMIPRIL [Concomitant]
     Dates: start: 20131018
  14. SPIRONOLACTONE [Concomitant]
     Dates: start: 20130823, end: 20131008
  15. SPIRONOLACTONE [Concomitant]
     Dates: start: 20131018

REACTIONS (4)
  - Myalgia [Recovering/Resolving]
  - Pain [Unknown]
  - Hypoaesthesia [Unknown]
  - Fatigue [Unknown]
